FAERS Safety Report 20038477 (Version 1)
Quarter: 2021Q4

REPORT INFORMATION
  Report Type: Spontaneous
  Country: FR (occurrence: FR)
  Receive Date: 20211105
  Receipt Date: 20211105
  Transmission Date: 20220303
  Serious: Yes (Hospitalization)
  Sender: FDA-Public Use
  Company Number: None

PATIENT
  Age: 90 Year
  Sex: Male
  Weight: 58.2 kg

DRUGS (9)
  1. PRAVASTATIN SODIUM [Suspect]
     Active Substance: PRAVASTATIN SODIUM
     Indication: Hyperlipidaemia
     Dosage: 20 MG IN THE EVENING:UNT DOSE:1DOSAGEFORM
     Dates: end: 20210903
  2. CANDESARTAN CILEXETIL [Suspect]
     Active Substance: CANDESARTAN CILEXETIL
     Indication: Hypertension
     Dosage: 16 MG IN THE MORNING:UNIT DOSE:1DOSAGEFORM?ROUTE OF ADMINISTRATION: ORAL.
     Route: 048
     Dates: end: 20210903
  3. XARELTO [Suspect]
     Active Substance: RIVAROXABAN
     Indication: Anticoagulant therapy
     Dosage: 1DOSAGEFORM
     Route: 048
     Dates: end: 20210922
  4. MELATONIN [Suspect]
     Active Substance: MELATONIN
     Indication: Insomnia
     Dosage: ROUTE OF ADMINISTRATION : ORAL .UNIT DOSE:1DOSAGEFORM
     Route: 048
  5. HYDROCHLOROTHIAZIDE [Suspect]
     Active Substance: HYDROCHLOROTHIAZIDE
     Indication: Hypertension
     Dosage: 1DOSAGEFORM
     Route: 048
     Dates: end: 20210907
  6. AMIODARONE [Suspect]
     Active Substance: AMIODARONE
     Indication: Arrhythmia
     Dosage: SCORED TABLET,UNIT DOSE:1DOSAGEFORM
     Route: 048
  7. AUGMENTIN [Suspect]
     Active Substance: AMOXICILLIN\CLAVULANATE POTASSIUM
     Indication: Antibiotic therapy
     Dosage: ROUTE OF ADMINISTRATION : ORAL .FORMSTRENGTH:1 G / 125 MG ADULTS, POWDER FOR ORAL SUSPENSION IN SACH
     Route: 048
  8. RISPERDAL [Suspect]
     Active Substance: RISPERIDONE
     Indication: Neuroleptic malignant syndrome
     Dosage: ROUTE OF ADMINISTRATION : ORAL ,UNIT DOSE:1DOSAGEFORM
     Route: 048
     Dates: end: 20210922
  9. TRAMADOL HYDROCHLORIDE [Suspect]
     Active Substance: TRAMADOL HYDROCHLORIDE
     Indication: Analgesic intervention supportive therapy
     Dosage: ROUTE OF ADMINISTRATION : ORAL ,UNIT DOSE:1DOSAGEFORM
     Route: 048

REACTIONS (2)
  - Fall [Recovered/Resolved]
  - Hypotension [Recovered/Resolved]

NARRATIVE: CASE EVENT DATE: 20210903
